FAERS Safety Report 4463868-9 (Version None)
Quarter: 2004Q3

REPORT INFORMATION
  Report Type: 
  Country: None (occurrence: None)
  Receive Date: 20040929
  Receipt Date: 20040916
  Transmission Date: 20050211
  Serious: Yes (Hospitalization)
  Sender: FDA-Public Use
  Company Number: 2004068926

PATIENT
  Sex: Female

DRUGS (3)
  1. VIRACEPT [Suspect]
     Indication: HIV TEST POSITIVE
     Dosage: ORAL
     Route: 048
     Dates: start: 20030715, end: 20030922
  2. ZIDOVUDINE W/ LAMIVUDINE (LAMIVUDINE ZIDOVUDINE) [Suspect]
     Indication: HIV TEST POSITIVE
     Dosage: ORAL
     Route: 048
     Dates: start: 20030715, end: 20030922
  3. ZIDOVUDINE [Suspect]
     Indication: HIV TEST POSITIVE
     Dosage: (1 D), INTRAVENOUS
     Route: 042
     Dates: start: 20030922, end: 20030922

REACTIONS (2)
  - CAESAREAN SECTION [None]
  - DRUG EXPOSURE DURING PREGNANCY [None]
